FAERS Safety Report 23138627 (Version 1)
Quarter: 2023Q4

REPORT INFORMATION
  Report Type: Spontaneous
  Country: US (occurrence: None)
  Receive Date: 20231101
  Receipt Date: 20231101
  Transmission Date: 20240109
  Serious: Yes (Other)
  Sender: FDA-Public Use
  Company Number: None

PATIENT
  Age: 18 Year
  Sex: Male
  Weight: 65.25 kg

DRUGS (2)
  1. SINGULAIR [Suspect]
     Active Substance: MONTELUKAST SODIUM
     Indication: Multiple allergies
     Dosage: FREQUENCY : DAILY;?
     Route: 048
     Dates: start: 20040201, end: 20190201
  2. ALLEGRA [Concomitant]
     Active Substance: FEXOFENADINE HYDROCHLORIDE

REACTIONS (11)
  - Mood swings [None]
  - Agitation [None]
  - Intermittent explosive disorder [None]
  - Emotional distress [None]
  - Anger [None]
  - Depression [None]
  - Suicidal ideation [None]
  - Therapy cessation [None]
  - Drug ineffective [None]
  - Memory impairment [None]
  - Anxiety [None]

NARRATIVE: CASE EVENT DATE: 20170620
